FAERS Safety Report 17467975 (Version 1)
Quarter: 2020Q1

REPORT INFORMATION
  Report Type: Report from Study
  Country: CO (occurrence: CO)
  Receive Date: 20200227
  Receipt Date: 20200227
  Transmission Date: 20200409
  Serious: Yes (Hospitalization, Other)
  Sender: FDA-Public Use
  Company Number: CO-ROCHE-2494353

PATIENT
  Sex: Female

DRUGS (1)
  1. CELLCEPT [Suspect]
     Active Substance: MYCOPHENOLATE MOFETIL\MYCOPHENOLATE MOFETIL HYDROCHLORIDE
     Indication: PRODUCT USED FOR UNKNOWN INDICATION
     Dosage: 3 IN THE MORNING AND 3 IN THE EVENING
     Route: 065

REACTIONS (6)
  - Eating disorder [Unknown]
  - Feeling abnormal [Unknown]
  - Asphyxia [Unknown]
  - Dyspnoea [Unknown]
  - Malaise [Unknown]
  - Nasal cavity mass [Unknown]
